FAERS Safety Report 7078488-X (Version None)
Quarter: 2010Q4

REPORT INFORMATION
  Report Type: 
  Country: None (occurrence: None)
  Receive Date: 20101102
  Receipt Date: 20101022
  Transmission Date: 20110411
  Serious: Yes (Life-Threatening, Hospitalization)
  Sender: FDA-Public Use
  Company Number: GXKR2010TR12001

PATIENT
  Age: 76 Year
  Sex: Female

DRUGS (1)
  1. CIPROFLOXACIN [Suspect]
     Indication: OROPHARYNGEAL PAIN
     Dosage: 750 MG, UNK
     Route: 065

REACTIONS (11)
  - BRONCHIAL OBSTRUCTION [None]
  - CHEST PAIN [None]
  - COLLAPSE OF LUNG [None]
  - COUGH [None]
  - CYANOSIS [None]
  - DYSPNOEA [None]
  - ENDOTRACHEAL INTUBATION [None]
  - FOREIGN BODY ASPIRATION [None]
  - HYPOXIA [None]
  - REMOVAL OF FOREIGN BODY [None]
  - TACHYPNOEA [None]
